FAERS Safety Report 14190346 (Version 5)
Quarter: 2018Q2

REPORT INFORMATION
  Report Type: Spontaneous
  Country: US (occurrence: US)
  Receive Date: 20171115
  Receipt Date: 20180601
  Transmission Date: 20180711
  Serious: Yes (Other)
  Sender: FDA-Public Use
  Company Number: US-009507513-1710USA011387

PATIENT
  Sex: Female
  Weight: 44.44 kg

DRUGS (2)
  1. IMPLANON [Suspect]
     Active Substance: ETONOGESTREL
     Dosage: 1 IMPLANON, UNK
     Route: 059
     Dates: start: 20111215, end: 2018
  2. IMPLANON [Suspect]
     Active Substance: ETONOGESTREL
     Indication: CONTRACEPTION
     Dosage: 1 IMPLANT, UNK
     Route: 059
     Dates: start: 2008, end: 2011

REACTIONS (21)
  - Tremor [Not Recovered/Not Resolved]
  - Surgery [Recovered/Resolved]
  - Depressed mood [Not Recovered/Not Resolved]
  - Abdominal pain upper [Unknown]
  - Incorrect drug administration duration [Recovered/Resolved]
  - Vision blurred [Not Recovered/Not Resolved]
  - Weight fluctuation [Not Recovered/Not Resolved]
  - Disturbance in attention [Unknown]
  - Menstruation irregular [Not Recovered/Not Resolved]
  - Device dislocation [Recovered/Resolved]
  - Fatigue [Not Recovered/Not Resolved]
  - Menorrhagia [Not Recovered/Not Resolved]
  - Vomiting [Unknown]
  - Device difficult to use [Recovered/Resolved]
  - Complication associated with device [Recovered/Resolved]
  - Complication of device removal [Recovered/Resolved]
  - Headache [Not Recovered/Not Resolved]
  - Complication associated with device [Recovered/Resolved]
  - Dizziness [Not Recovered/Not Resolved]
  - Weight increased [Not Recovered/Not Resolved]
  - Device deployment issue [Recovered/Resolved]

NARRATIVE: CASE EVENT DATE: 2011
